FAERS Safety Report 4597224-X (Version None)
Quarter: 2005Q1

REPORT INFORMATION
  Report Type: 
  Country: None (occurrence: None)
  Receive Date: 20050301
  Receipt Date: 20050217
  Transmission Date: 20050727
  Serious: Yes (Other)
  Sender: FDA-Public Use
  Company Number: 2005034243

PATIENT
  Age: 77 Year
  Sex: Male

DRUGS (2)
  1. CETIRIZINE HCL [Suspect]
     Indication: HYPERSENSITIVITY
     Dosage: 10 MG (10 MG, 1 IN 1 D); UNKNOWN
     Dates: start: 20050201
  2. FENSPIRIDE HYDROCHLORIDE (FENSPIRIDE HYDROCHLORIDE) [Suspect]
     Indication: ILL-DEFINED DISORDER
     Dosage: 160 MG (160 G, 1 D) UNKNOWN
     Dates: start: 20050215, end: 20050215

REACTIONS (3)
  - ANGIONEUROTIC OEDEMA [None]
  - PALPITATIONS [None]
  - TACHYCARDIA [None]
